FAERS Safety Report 8121854-1 (Version None)
Quarter: 2012Q1

REPORT INFORMATION
  Report Type: 
  Country: None (occurrence: None)
  Receive Date: 20120207
  Receipt Date: 20120207
  Transmission Date: 20120608
  Serious: Yes (Hospitalization)
  Sender: FDA-Public Use
  Company Number: None

PATIENT
  Age: 88 Year
  Sex: Male
  Weight: 96.6 kg

DRUGS (2)
  1. WARFARIN SODIUM [Suspect]
     Indication: PULMONARY EMBOLISM
     Dosage: 1MG UD PO
     Route: 048
     Dates: start: 20110919, end: 20120114
  2. WARFARIN SODIUM [Suspect]
     Indication: DEEP VEIN THROMBOSIS
     Dosage: 1MG UD PO
     Route: 048
     Dates: start: 20110919, end: 20120114

REACTIONS (1)
  - CEREBRAL HAEMORRHAGE [None]
